FAERS Safety Report 8350522-6 (Version None)
Quarter: 2012Q2

REPORT INFORMATION
  Report Type: 
  Country: None (occurrence: None)
  Receive Date: 20120510
  Receipt Date: 20120502
  Transmission Date: 20120825
  Serious: Yes (Hospitalization)
  Sender: FDA-Public Use
  Company Number: US-ALEXION-A201200607

PATIENT
  Sex: Male

DRUGS (9)
  1. SOLIRIS [Suspect]
     Dosage: 1200 MG, Q2W
     Route: 042
     Dates: start: 20120405
  2. LABETALOL HCL [Concomitant]
     Dosage: 200 MG, TID
     Route: 048
  3. SENNA-MINT WAF [Concomitant]
     Dosage: UNK, QD
     Route: 048
  4. MIRALAX [Concomitant]
     Indication: CONSTIPATION
     Dosage: 17 G, QD
     Route: 048
  5. PROCARDIA [Concomitant]
     Dosage: 60 MG, QID
     Route: 048
  6. SOLIRIS [Suspect]
     Indication: HAEMOLYTIC URAEMIC SYNDROME
     Dosage: 900 MG, QW
     Route: 042
     Dates: start: 20120315, end: 20120405
  7. CALCIUM CARBONATE [Concomitant]
     Dosage: UNK, QD
     Route: 048
  8. CLONIDINE [Concomitant]
     Dosage: 0.2 MG, TID
     Route: 048
  9. LORTAB [Concomitant]
     Dosage: 5/500 MG, Q 6 HRS, PRN
     Route: 048

REACTIONS (13)
  - PULMONARY OEDEMA [None]
  - DEHYDRATION [None]
  - PNEUMONIA [None]
  - HEART RATE INCREASED [None]
  - BACK PAIN [None]
  - HAEMATEMESIS [None]
  - LEFT VENTRICULAR DYSFUNCTION [None]
  - NAUSEA [None]
  - VOMITING [None]
  - HYPERTENSION [None]
  - CARDIAC FAILURE CONGESTIVE [None]
  - HYPOXIA [None]
  - GROIN PAIN [None]
